FAERS Safety Report 4614865-1 (Version None)
Quarter: 2005Q1

REPORT INFORMATION
  Report Type: 
  Country: None (occurrence: None)
  Receive Date: 20050318
  Receipt Date: 20050318
  Transmission Date: 20050727
  Serious: Yes (Hospitalization)
  Sender: FDA-Public Use
  Company Number: None

PATIENT
  Age: 73 Year
  Sex: Female
  Weight: 68.0396 kg

DRUGS (2)
  1. BENICAR [Suspect]
     Indication: HYPERTENSION
     Dosage: 20MG  BID  ORAL
     Route: 048
     Dates: start: 20020918, end: 20050317
  2. INDOMETHACIN [Suspect]
     Indication: ARTHRITIS
     Dosage: 50MG   TID   ORAL
     Route: 048
     Dates: start: 20050211, end: 20050214

REACTIONS (3)
  - LOSS OF CONSCIOUSNESS [None]
  - OEDEMA [None]
  - OROPHARYNGEAL SWELLING [None]
